FAERS Safety Report 11472802 (Version 1)
Quarter: 2015Q3

REPORT INFORMATION
  Report Type: Other
  Country: GB (occurrence: GB)
  Receive Date: 20150908
  Receipt Date: 20150908
  Transmission Date: 20151125
  Serious: Yes (Hospitalization)
  Sender: FDA-Public Use
  Company Number: GB-APOTEX-2015AP012320

PATIENT
  Age: 66 Year
  Sex: Female
  Weight: 102 kg

DRUGS (1)
  1. PERINDOPRIL TABLETS [Suspect]
     Active Substance: PERINDOPRIL
     Indication: HYPERTENSION
     Dosage: 2 MG, UNK
     Route: 048
     Dates: start: 20150724, end: 20150804

REACTIONS (2)
  - Constipation [Recovered/Resolved]
  - Cheilitis [Recovered/Resolved]
